FAERS Safety Report 9110047 (Version 1)
Quarter: 2013Q1

REPORT INFORMATION
  Report Type: Spontaneous
  Country: FR (occurrence: FR)
  Receive Date: 20130222
  Receipt Date: 20130222
  Transmission Date: 20140127
  Serious: Yes (Other)
  Sender: FDA-Public Use
  Company Number: FR-ROCHE-1193568

PATIENT
  Age: 8 Year
  Sex: Female
  Weight: 26.5 kg

DRUGS (6)
  1. ROACTEMRA [Suspect]
     Indication: JUVENILE IDIOPATHIC ARTHRITIS
     Dosage: DOSE 20 MG/ML
     Route: 042
     Dates: start: 20130107
  2. SPASFON [Concomitant]
     Indication: ABDOMINAL PAIN
     Dosage: DOSE 40 MG/4ML
     Route: 042
  3. PIPERACILLINE [Concomitant]
     Dosage: DOSE 2G/250 MG
     Route: 042
  4. AMIKACINE [Concomitant]
     Route: 042
  5. PARACETAMOL [Concomitant]
     Route: 042
     Dates: start: 20130122, end: 20130123
  6. KINERET [Concomitant]
     Route: 058

REACTIONS (2)
  - Hepatocellular injury [Unknown]
  - Cholestasis [Unknown]
